FAERS Safety Report 8571901-8 (Version None)
Quarter: 2012Q3

REPORT INFORMATION
  Report Type: 
  Country: None (occurrence: None)
  Receive Date: 20120806
  Receipt Date: 20120726
  Transmission Date: 20120928
  Serious: Yes (Other)
  Sender: FDA-Public Use
  Company Number: US-JNJFOC-20120800185

PATIENT
  Sex: Female
  Weight: 17.24 kg

DRUGS (2)
  1. CONCERTA [Suspect]
     Indication: ATTENTION DEFICIT/HYPERACTIVITY DISORDER
     Route: 048
     Dates: start: 20120721, end: 20120725
  2. RISPERIDONE [Suspect]
     Indication: BIPOLAR DISORDER
     Route: 030
     Dates: start: 20120417

REACTIONS (2)
  - BIPOLAR DISORDER [None]
  - PARAESTHESIA [None]
